FAERS Safety Report 6975803-X (Version None)
Quarter: 2010Q3

REPORT INFORMATION
  Report Type: 
  Country: None (occurrence: None)
  Receive Date: 20100910
  Receipt Date: 20090406
  Transmission Date: 20110219
  Serious: No
  Sender: FDA-Public Use
  Company Number: US-WYE-H08852509

PATIENT
  Age: 80 Year
  Sex: Male

DRUGS (2)
  1. PRISTIQ [Suspect]
     Route: 048
     Dates: start: 20090327
  2. COUMADIN [Suspect]
     Dosage: UNKNOWN
     Dates: end: 20090402

REACTIONS (3)
  - DIARRHOEA [None]
  - INTERNATIONAL NORMALISED RATIO INCREASED [None]
  - NAUSEA [None]
